FAERS Safety Report 11999129 (Version 7)
Quarter: 2017Q3

REPORT INFORMATION
  Report Type: Report from Study
  Country: CA (occurrence: CA)
  Receive Date: 20160204
  Receipt Date: 20170727
  Transmission Date: 20171127
  Serious: Yes (Other)
  Sender: FDA-Public Use
  Company Number: CA-ROCHE-ITM201505IM016980

PATIENT
  Age: 69 Year
  Sex: Female

DRUGS (19)
  1. ATACAND [Concomitant]
     Active Substance: CANDESARTAN CILEXETIL
  2. PAXIL (CANADA) [Concomitant]
  3. ESBRIET [Suspect]
     Active Substance: PIRFENIDONE
     Indication: IDIOPATHIC PULMONARY FIBROSIS
     Route: 048
     Dates: start: 20141120
  4. VITAMIN D3 [Concomitant]
     Active Substance: CHOLECALCIFEROL
  5. XARELTO [Concomitant]
     Active Substance: RIVAROXABAN
     Dosage: 20 UNITS NOT REPORTED
     Route: 065
  6. PIROXICAM. [Concomitant]
     Active Substance: PIROXICAM
  7. TUMS [Concomitant]
     Active Substance: CALCIUM CARBONATE
  8. PREVACID [Concomitant]
     Active Substance: LANSOPRAZOLE
     Route: 065
  9. CALCIMAR [Suspect]
     Active Substance: CALCITONIN SALMON
     Indication: PRODUCT USED FOR UNKNOWN INDICATION
     Dosage: 200 IU/ML - INJECT 1 DOSE SUB-Q (0.5 ML) ONCE DAILY FOR 6 WEEKS
     Route: 065
     Dates: start: 20150112
  10. IMOVANE [Concomitant]
     Active Substance: ZOPICLONE
  11. OXYGEN. [Concomitant]
     Active Substance: OXYGEN
  12. LOSEC [Concomitant]
     Active Substance: OMEPRAZOLE
  13. ESBRIET [Suspect]
     Active Substance: PIRFENIDONE
     Route: 048
     Dates: start: 20141127
  14. ESBRIET [Suspect]
     Active Substance: PIRFENIDONE
     Route: 048
     Dates: start: 20141204
  15. TYLENOL [Concomitant]
     Active Substance: ACETAMINOPHEN
     Route: 065
  16. TRAZODONE [Concomitant]
     Active Substance: TRAZODONE HYDROCHLORIDE
     Dosage: 50 UNITS NOT REPORTED
     Route: 065
  17. ACETYLCYSTEINE. [Concomitant]
     Active Substance: ACETYLCYSTEINE
  18. PREDNISONE. [Concomitant]
     Active Substance: PREDNISONE
     Route: 065
     Dates: end: 20141205
  19. CODEINE CONTIN [Concomitant]
     Active Substance: CODEINE SULFATE
     Route: 065

REACTIONS (29)
  - Back disorder [Not Recovered/Not Resolved]
  - Oral pain [Not Recovered/Not Resolved]
  - Dyspepsia [Not Recovered/Not Resolved]
  - Myalgia [Not Recovered/Not Resolved]
  - Faeces discoloured [Not Recovered/Not Resolved]
  - Throat irritation [Not Recovered/Not Resolved]
  - Bone density decreased [Unknown]
  - Mucous stools [Not Recovered/Not Resolved]
  - Cough [Unknown]
  - Candida infection [Unknown]
  - Oxygen saturation increased [Not Recovered/Not Resolved]
  - Heart rate increased [Not Recovered/Not Resolved]
  - Gastroenteritis viral [Recovered/Resolved]
  - Arthritis [Not Recovered/Not Resolved]
  - Fibromyalgia [Not Recovered/Not Resolved]
  - Abdominal pain [Not Recovered/Not Resolved]
  - Chest pain [Not Recovered/Not Resolved]
  - Urinary tract infection [Unknown]
  - Compression fracture [Unknown]
  - Gastric disorder [Not Recovered/Not Resolved]
  - Pain [Not Recovered/Not Resolved]
  - Diarrhoea [Not Recovered/Not Resolved]
  - Photosensitivity reaction [Recovered/Resolved]
  - Arthralgia [Not Recovered/Not Resolved]
  - Decreased appetite [Not Recovered/Not Resolved]
  - Back pain [Not Recovered/Not Resolved]
  - Diarrhoea [Not Recovered/Not Resolved]
  - Pulmonary function test decreased [Not Recovered/Not Resolved]
  - Granuloma annulare [Unknown]

NARRATIVE: CASE EVENT DATE: 20141228
